FAERS Safety Report 15907452 (Version 4)
Quarter: 2019Q2

REPORT INFORMATION
  Report Type: Report from Study
  Country: CO (occurrence: CO)
  Receive Date: 20190204
  Receipt Date: 20190402
  Transmission Date: 20190711
  Serious: Yes (Death, Hospitalization)
  Sender: FDA-Public Use
  Company Number: CO-PFIZER INC-2019037445

PATIENT
  Age: 77 Year
  Sex: Female
  Weight: 42 kg

DRUGS (5)
  1. LETROZOLE. [Concomitant]
     Active Substance: LETROZOLE
     Indication: BREAST CANCER METASTATIC
     Dosage: 2.5 MG, DOSE OF 1 TABLET ONCE DAILY FROM DAY 1 TO 28, CYCLES EVERY 28 DAYS.
     Route: 048
     Dates: start: 20170905, end: 20190123
  2. NITROFURANTOINE [Concomitant]
     Active Substance: NITROFURANTOIN
     Indication: URINARY TRACT INFECTION
     Dosage: UNK
     Dates: start: 20181106, end: 20190106
  3. LEVOTHYROXINE. [Concomitant]
     Active Substance: LEVOTHYROXINE
     Indication: HYPOTHYROIDISM
     Dosage: UNK
     Dates: start: 20180726
  4. ACETAMINOPHEN;HYDROCODONE [Concomitant]
     Active Substance: ACETAMINOPHEN\HYDROCODONE
     Indication: MYALGIA
     Dosage: UNK
     Dates: start: 20181016
  5. PALBOCICLIB [Suspect]
     Active Substance: PALBOCICLIB
     Indication: BREAST CANCER METASTATIC
     Dosage: 125 MG, DOSE OF 1 CAPSULE ONCE DAILY FROM DAY 1 TO 21
     Route: 048
     Dates: start: 20170905, end: 20190118

REACTIONS (1)
  - Tuberculosis [Recovered/Resolved with Sequelae]

NARRATIVE: CASE EVENT DATE: 20190109
